FAERS Safety Report 5491580-6 (Version None)
Quarter: 2007Q4

REPORT INFORMATION
  Report Type: 
  Country: None (occurrence: None)
  Receive Date: 20071018
  Receipt Date: 20071018
  Transmission Date: 20080405
  Serious: No
  Sender: FDA-Public Use
  Company Number: None

PATIENT
  Age: 61 Year
  Sex: Male

DRUGS (15)
  1. HEPARIN [Suspect]
     Indication: THROMBOSIS IN DEVICE
     Dosage: VAR. APTT GOAL 40-50 SEC
     Dates: start: 20070712, end: 20070716
  2. INSULIN [Concomitant]
  3. MOM [Concomitant]
  4. BISACODYL [Concomitant]
  5. TIMOLOL EYE DROP [Concomitant]
  6. LATANOPROST [Concomitant]
  7. MORPHINE [Concomitant]
  8. AMIODARONE [Concomitant]
  9. TRIAMCINOLONE [Concomitant]
  10. LINEZOLID [Concomitant]
  11. CLINDAMYCIN HCL [Concomitant]
  12. LACTULOSE [Concomitant]
  13. FENTANYL [Concomitant]
  14. ZOSYN [Concomitant]
  15. NOREPI [Concomitant]

REACTIONS (9)
  - ACTIVATED PARTIAL THROMBOPLASTIN TIME PROLONGED [None]
  - BACTERAEMIA [None]
  - CARDIAC FAILURE CONGESTIVE [None]
  - CONTINUOUS HAEMODIAFILTRATION [None]
  - HYPOTENSION [None]
  - POST PROCEDURAL COMPLICATION [None]
  - RENAL FAILURE ACUTE [None]
  - THROMBOCYTOPENIA [None]
  - THROMBOSIS IN DEVICE [None]
